FAERS Safety Report 18341057 (Version 1)
Quarter: 2020Q4

REPORT INFORMATION
  Report Type: Spontaneous
  Country: BE (occurrence: BE)
  Receive Date: 20201003
  Receipt Date: 20201003
  Transmission Date: 20210113
  Serious: Yes (Other)
  Sender: FDA-Public Use
  Company Number: BE-AUROBINDO-AUR-APL-2020-050195

PATIENT
  Age: 58 Year
  Sex: Female

DRUGS (10)
  1. CREON [Concomitant]
     Active Substance: PANCRELIPASE AMYLASE\PANCRELIPASE LIPASE\PANCRELIPASE PROTEASE
     Indication: PANCREATIC FAILURE
     Dosage: 10-12 TABLETS/ DAY
     Route: 048
     Dates: start: 1999
  2. DUOVENT [Concomitant]
     Active Substance: FENOTEROL HYDROBROMIDE
     Indication: BRONCHIAL HYPERREACTIVITY
     Dosage: 4 MILLILITER, PRN
     Route: 065
     Dates: start: 20170517
  3. VISTA D3 [Concomitant]
     Indication: PANCREATIC FAILURE
     Dosage: UNK, 1/ MONTH
     Route: 048
     Dates: start: 20190523
  4. PANTOMED [Concomitant]
     Indication: REFLUX GASTRITIS
     Dosage: 40 MILLIGRAM, ONCE A DAY, QD
     Route: 048
     Dates: start: 20110908
  5. NOVORAPID [Concomitant]
     Active Substance: INSULIN ASPART
     Indication: CYSTIC FIBROSIS RELATED DIABETES
     Dosage: 1 DOSAGE FORM, 3 TIMES A DAY
     Route: 058
     Dates: start: 201709
  6. ASAFLOW [Concomitant]
     Active Substance: ASPIRIN
     Indication: THROMBOSIS PROPHYLAXIS
     Dosage: 80 MILLIGRAM, ONCE A DAY(QD)
     Route: 048
     Dates: start: 20190207
  7. PULMOZYME [Concomitant]
     Active Substance: DORNASE ALFA
     Indication: CYSTIC FIBROSIS LUNG
     Dosage: 2.5 MILLILITER, ONCE A DAY, QD
     Route: 065
     Dates: start: 20040325
  8. AZITHROMYCIN ANHYDROUS. [Suspect]
     Active Substance: AZITHROMYCIN ANHYDROUS
     Indication: PRODUCT USED FOR UNKNOWN INDICATION
     Dosage: 500 MILLIGRAM, 3X1 WEEK
     Route: 065
  9. KALYDECO [Suspect]
     Active Substance: IVACAFTOR
     Indication: CYSTIC FIBROSIS
     Dosage: 1 DOSAGE FORM, ONCE A DAY(150MG IVACAFTOR, QD)
     Route: 048
     Dates: start: 20200731, end: 20200824
  10. KALYDECO [Suspect]
     Active Substance: IVACAFTOR
     Dosage: UNK, HALF DOSAGE REGIMEN
     Route: 048
     Dates: start: 20200831

REACTIONS (5)
  - Blood lactate dehydrogenase increased [Recovering/Resolving]
  - Aspartate aminotransferase increased [Recovering/Resolving]
  - Gamma-glutamyltransferase increased [Recovering/Resolving]
  - Alanine aminotransferase increased [Recovering/Resolving]
  - Blood alkaline phosphatase increased [Recovering/Resolving]

NARRATIVE: CASE EVENT DATE: 202008
